FAERS Safety Report 4276411-4 (Version None)
Quarter: 2004Q1

REPORT INFORMATION
  Report Type: 
  Country: None (occurrence: None)
  Receive Date: 20040121
  Receipt Date: 20040114
  Transmission Date: 20041129
  Serious: Yes (Other)
  Sender: FDA-Public Use
  Company Number: PHEH2004US00899

PATIENT
  Sex: 0

DRUGS (1)
  1. GLEEVEC [Suspect]

REACTIONS (2)
  - DEAFNESS [None]
  - VERTIGO [None]
